FAERS Safety Report 4434713-2 (Version None)
Quarter: 2004Q3

REPORT INFORMATION
  Report Type: 
  Country: None (occurrence: None)
  Receive Date: 20040827
  Receipt Date: 20040520
  Transmission Date: 20050211
  Serious: No
  Sender: FDA-Public Use
  Company Number: US-BRISTOL-MYERS SQUIBB COMPANY-12592440

PATIENT
  Age: 58 Year
  Sex: Female

DRUGS (1)
  1. DEFINITY [Suspect]
     Dosage: DILUTED
     Route: 040

REACTIONS (2)
  - CHEST WALL PAIN [None]
  - PAIN IN EXTREMITY [None]
